FAERS Safety Report 4962977-5 (Version None)
Quarter: 2006Q1

REPORT INFORMATION
  Report Type: 
  Country: None (occurrence: None)
  Receive Date: 20060331
  Receipt Date: 20060321
  Transmission Date: 20060701
  Serious: Yes (Other)
  Sender: FDA-Public Use
  Company Number: VNL_0109_2006

PATIENT
  Age: 52 Year
  Sex: Male

DRUGS (3)
  1. APO-GO [Suspect]
     Indication: PARKINSON'S DISEASE
     Dosage: 5 MG UNK SC
     Route: 058
  2. LEVODOPA [Concomitant]
  3. CABEGOLINE [Concomitant]

REACTIONS (4)
  - HYPERHIDROSIS [None]
  - HYPERSENSITIVITY [None]
  - RASH [None]
  - TACHYCARDIA [None]
